FAERS Safety Report 9299014 (Version 2)
Quarter: 2014Q3

REPORT INFORMATION
  Report Type: Spontaneous
  Country: US (occurrence: US)
  Receive Date: 20130520
  Receipt Date: 20140707
  Transmission Date: 20150326
  Serious: Yes (Hospitalization)
  Sender: FDA-Public Use
  Company Number: US-009507513-1305USA010213

PATIENT
  Sex: Female
  Weight: 97.51 kg

DRUGS (1)
  1. NUVARING [Suspect]
     Active Substance: ETHINYL ESTRADIOL\ETONOGESTREL
     Indication: CONTRACEPTION
     Dosage: UNK
     Route: 067
     Dates: start: 200910, end: 20100516

REACTIONS (9)
  - Arthropod bite [Recovering/Resolving]
  - Pulmonary hypertension [Unknown]
  - Weight increased [Unknown]
  - Embolism [Unknown]
  - Deep vein thrombosis [Unknown]
  - Abscess [Recovering/Resolving]
  - Protein C deficiency [Unknown]
  - Cardiac murmur [Unknown]
  - Protein S deficiency [Unknown]

NARRATIVE: CASE EVENT DATE: 201005
